FAERS Safety Report 10684650 (Version 13)
Quarter: 2021Q2

REPORT INFORMATION
  Report Type: Spontaneous
  Country: GB (occurrence: GB)
  Receive Date: 20141231
  Receipt Date: 20210518
  Transmission Date: 20210716
  Serious: Yes (Life-Threatening, Hospitalization, Congenital Anomaly, Other)
  Sender: FDA-Public Use
  Company Number: PHHY2014GB167673

PATIENT
  Age: 1 Day
  Sex: Female
  Weight: 2.55 kg

DRUGS (20)
  1. CODEINE [Suspect]
     Active Substance: CODEINE
     Indication: FOETAL EXPOSURE DURING PREGNANCY
     Dosage: MATERNAL DOSE: 4 OT, QD
     Route: 064
  2. METRONIDAZOLE. [Concomitant]
     Active Substance: METRONIDAZOLE
     Indication: FOETAL EXPOSURE DURING PREGNANCY
     Dosage: (MATERNAL DOSE:UNKNOWN)
     Route: 064
  3. ENOXAPARIN [Concomitant]
     Active Substance: ENOXAPARIN
     Indication: FOETAL EXPOSURE DURING PREGNANCY
     Dosage: (MATERNAL DOSE:UNKNOWN)
     Route: 064
  4. CODEINE [Suspect]
     Active Substance: CODEINE
     Indication: BACK DISORDER
  5. CODEINE [Suspect]
     Active Substance: CODEINE
     Indication: PELVIC PAIN
  6. PERFALGAN [Suspect]
     Active Substance: ACETAMINOPHEN
     Indication: BACK DISORDER
     Dosage: MATERNAL DOSE: UNKNOWN (UP TO 4 TIMES A DAY)
     Route: 064
  7. PERFALGAN [Suspect]
     Active Substance: ACETAMINOPHEN
     Indication: PELVIC PAIN
     Dosage: MATERNAL DOSE: UNKNOWN
     Route: 064
  8. PERFALGAN [Suspect]
     Active Substance: ACETAMINOPHEN
     Indication: FOETAL EXPOSURE DURING PREGNANCY
  9. PARACETAMOL [Suspect]
     Active Substance: ACETAMINOPHEN
     Indication: PELVIC PAIN
     Dosage: MATERNAL DOSE: 4 OT, QD
     Route: 064
  10. FLUOXETINE [Concomitant]
     Active Substance: FLUOXETINE HYDROCHLORIDE
     Indication: FOETAL EXPOSURE DURING PREGNANCY
     Dosage: (MATERNAL DOSE:UNKNOWN)
     Route: 064
  11. METRONIDAZOLE. [Concomitant]
     Active Substance: METRONIDAZOLE
     Indication: PYELONEPHRITIS
  12. COCODAMOL [Suspect]
     Active Substance: ACETAMINOPHEN\CODEINE PHOSPHATE
     Indication: FOETAL EXPOSURE DURING PREGNANCY
     Dosage: STAGGERED PARACETAMOL OVERDOSE(UNINTENTIONAL) OVER WEEKS AND DAYS PRIOR TO DELIVERY
     Route: 064
  13. COCODAMOL [Suspect]
     Active Substance: ACETAMINOPHEN\CODEINE PHOSPHATE
     Indication: PELVIC PAIN
     Dosage: UNK
     Route: 064
  14. MORPHINE HYDROCHLORIDE [Concomitant]
     Active Substance: MORPHINE HYDROCHLORIDE
     Indication: PRODUCT USED FOR UNKNOWN INDICATION
     Dosage: UNK
     Route: 064
  15. COCODAMOL [Suspect]
     Active Substance: ACETAMINOPHEN\CODEINE PHOSPHATE
     Indication: BACK DISORDER
     Dosage: UNK, QID
     Route: 064
  16. PERFALGAN [Suspect]
     Active Substance: ACETAMINOPHEN
     Indication: FOETAL EXPOSURE DURING PREGNANCY
     Dosage: STAGGERED PARACETAMOL OVERDOSE(UNINTENTIONAL) OVER WEEKS AND DAYS PRIOR TO DELIVERY
     Route: 064
  17. PARACETAMOL [Suspect]
     Active Substance: ACETAMINOPHEN
     Indication: FOETAL EXPOSURE DURING PREGNANCY
     Dosage: UNK, UP TO FOUR TIMES A DAY
     Route: 064
  18. PARACETAMOL [Suspect]
     Active Substance: ACETAMINOPHEN
     Indication: BACK DISORDER
  19. CEFRADINE [Concomitant]
     Active Substance: CEPHRADINE
     Indication: FOETAL EXPOSURE DURING PREGNANCY
     Dosage: (MATERNAL DOSE: UNKNOWN)
     Route: 064
  20. CEFRADINE [Concomitant]
     Active Substance: CEPHRADINE
     Indication: PYELONEPHRITIS

REACTIONS (21)
  - Developmental delay [Not Recovered/Not Resolved]
  - Foetal arrhythmia [Recovered/Resolved]
  - Jaundice neonatal [Recovered/Resolved]
  - Respiratory distress [Recovered/Resolved]
  - Hepatotoxicity [Recovered/Resolved]
  - Hepatic function abnormal [Recovered/Resolved]
  - Incorrect product administration duration [Unknown]
  - Tremor [Unknown]
  - Heart rate irregular [Unknown]
  - Aphasia [Unknown]
  - Foetal monitoring abnormal [Unknown]
  - Premature baby [Unknown]
  - Drug dependence [Unknown]
  - Language disorder [Unknown]
  - Overdose [Unknown]
  - Foetal exposure during pregnancy [Unknown]
  - Low birth weight baby [Unknown]
  - Liver function test abnormal [Recovered/Resolved]
  - Gait inability [Unknown]
  - Drug withdrawal syndrome neonatal [Recovered/Resolved]
  - Malaise [Unknown]
